FAERS Safety Report 5849436-2 (Version None)
Quarter: 2008Q3

REPORT INFORMATION
  Report Type: 
  Country: None (occurrence: None)
  Receive Date: 20080815
  Receipt Date: 20080808
  Transmission Date: 20090109
  Serious: Yes (Hospitalization)
  Sender: FDA-Public Use
  Company Number: URSO-2008-086

PATIENT
  Age: 57 Year
  Sex: Male

DRUGS (6)
  1. URSO 250 [Suspect]
     Indication: HEPATITIS C
     Dosage: 600 MG/DAY PO
     Route: 048
     Dates: start: 20060901, end: 20080526
  2. EBASTEL (EBASTINE) [Suspect]
     Dosage: PO
     Route: 048
  3. HICEE (ASCORBIC ACID) [Suspect]
     Dosage: 3G PO
     Route: 048
  4. NEO-MINOPHAGEN C (GLYCYRRHIZIN-GLYCINE-CISTEINE COMBINED DRUG [Suspect]
     Dosage: PARENTERAL
     Route: 051
  5. FAMOTIDINE [Concomitant]
  6. LAC B (BIFIDOBACTERIUM) [Concomitant]

REACTIONS (7)
  - BLOOD ALKALINE PHOSPHATASE INCREASED [None]
  - BLOOD BILIRUBIN INCREASED [None]
  - GAMMA-GLUTAMYLTRANSFERASE INCREASED [None]
  - HEPATIC FUNCTION ABNORMAL [None]
  - LIVER DISORDER [None]
  - LYMPHOCYTE STIMULATION TEST POSITIVE [None]
  - OFF LABEL USE [None]
